FAERS Safety Report 8771982 (Version 1)
Quarter: 2012Q4

REPORT INFORMATION
  Report Type: Report from Study
  Country: JP (occurrence: JP)
  Receive Date: 20120906
  Receipt Date: 20120906
  Transmission Date: 20130627
  Serious: Yes (Hospitalization, Other)
  Sender: FDA-Public Use
  Company Number: JP-MERCK-2012SP020872

PATIENT

DRUGS (16)
  1. PEGINTERFERON ALFA-2B [Suspect]
     Indication: HEPATITIS C
     Dosage: 1.5 ?g/kg, QW
     Route: 058
     Dates: start: 20120202
  2. REBETOL [Suspect]
     Indication: HEPATITIS C
     Dosage: 600 mg, QD
     Route: 048
     Dates: start: 20120202, end: 20120216
  3. REBETOL [Suspect]
     Dosage: 400 mg, QD
     Route: 048
     Dates: start: 20120216, end: 20120423
  4. REBETOL [Suspect]
     Dosage: 400mg, qd
     Route: 048
  5. TELAVIC [Suspect]
     Indication: HEPATITIS C
     Dosage: 2250 mg, QD
     Route: 048
     Dates: start: 20120202, end: 20120315
  6. TELAVIC [Suspect]
     Dosage: 1500 mg, QD
     Route: 048
     Dates: start: 20120315
  7. TELAVIC [Suspect]
     Dosage: 1800 mg, QD
     Route: 048
     Dates: start: 20120315, end: 20120423
  8. TAKEPRON [Concomitant]
     Indication: PROPHYLAXIS
     Dosage: FORMULATION POR, NO OTHER DETAILS
     Route: 048
     Dates: start: 20120205
  9. URSO [Concomitant]
     Indication: HEPATITIS C
     Dosage: FORMULATION POR,NO OTHER DETAILS REPORTED
     Route: 048
     Dates: start: 20120209
  10. ALLEGRA [Concomitant]
     Indication: SEASONAL ALLERGY
     Dosage: FORMULATION POR,NO OTHER DATAILS AVAILABLE
     Route: 048
     Dates: start: 20120315
  11. LENDORMIN [Concomitant]
     Indication: PRODUCT USED FOR UNKNOWN INDICATION
     Dosage: FORMULATION IS POR, NO DETAILS
     Route: 048
  12. LENDORMIN [Concomitant]
     Dosage: 0.25 mg,QD
     Route: 048
  13. GASMOTIN [Concomitant]
     Indication: DECREASED APPETITE
     Dosage: 15 mg, Unknown
     Route: 048
  14. LIVALO [Concomitant]
     Indication: HEPATITIS C
     Dosage: 2 mg, qd
     Route: 048
  15. TALION (BEPOTASTINE BESYLATE) [Concomitant]
     Indication: PROPHYLAXIS
     Dosage: 20 mg, UNK
     Route: 048
  16. MAGMITT [Concomitant]
     Indication: PROPHYLAXIS
     Dosage: 1500 mg, UNK
     Route: 048

REACTIONS (4)
  - Pancytopenia [Not Recovered/Not Resolved]
  - Decreased appetite [Recovering/Resolving]
  - Pancytopenia [Recovering/Resolving]
  - Pancytopenia [Recovering/Resolving]
